FAERS Safety Report 23895574 (Version 1)
Quarter: 2024Q2

REPORT INFORMATION
  Report Type: Spontaneous
  Country: US (occurrence: US)
  Receive Date: 20240524
  Receipt Date: 20240524
  Transmission Date: 20240716
  Serious: Yes (Death, Hospitalization)
  Sender: FDA-Public Use
  Company Number: US-EDENBRIDGE PHARMACEUTICALS, LLC-US-2024EDE000038

PATIENT

DRUGS (1)
  1. IVERMECTIN [Suspect]
     Active Substance: IVERMECTIN
     Indication: COVID-19
     Dosage: UNK
     Route: 048

REACTIONS (5)
  - Acute kidney injury [Fatal]
  - Ischaemic hepatitis [Fatal]
  - Sepsis [Fatal]
  - Metabolic acidosis [Fatal]
  - Product use in unapproved indication [Unknown]
